FAERS Safety Report 7509017-1 (Version None)
Quarter: 2011Q2

REPORT INFORMATION
  Report Type: 
  Country: None (occurrence: None)
  Receive Date: 20110527
  Receipt Date: 20110524
  Transmission Date: 20111010
  Serious: Yes (Life-Threatening, Hospitalization)
  Sender: FDA-Public Use
  Company Number: DE-SANOFI-AVENTIS-2011SA032048

PATIENT
  Age: 52 Year
  Sex: Male
  Weight: 69 kg

DRUGS (9)
  1. ARAVA [Suspect]
     Indication: RHEUMATOID ARTHRITIS
     Route: 048
     Dates: start: 20090201
  2. ETANERCEPT [Suspect]
     Dosage: 50 MG EVERY NINE DAYS
     Route: 058
  3. IBUPROFEN [Concomitant]
     Route: 065
     Dates: start: 20021001
  4. ETANERCEPT [Suspect]
     Indication: RHEUMATOID ARTHRITIS
     Dosage: 50 MG WEEKLY
     Route: 058
     Dates: start: 20100202
  5. SULFASALAZINE [Concomitant]
     Indication: RHEUMATOID ARTHRITIS
     Route: 065
  6. PREDNISOLONE [Concomitant]
     Route: 065
     Dates: start: 20000701, end: 20100501
  7. TOCILIZUMAB [Concomitant]
     Indication: RHEUMATOID ARTHRITIS
     Route: 065
  8. PREDNISOLONE [Concomitant]
     Route: 065
     Dates: start: 20100501
  9. METHOTREXATE [Concomitant]
     Indication: RHEUMATOID ARTHRITIS
     Route: 065

REACTIONS (6)
  - WHITE BLOOD CELL COUNT INCREASED [None]
  - DIVERTICULAR PERFORATION [None]
  - ABDOMINAL PAIN UPPER [None]
  - DIVERTICULITIS [None]
  - CONDITION AGGRAVATED [None]
  - ABSCESS INTESTINAL [None]
